FAERS Safety Report 5246376-7 (Version None)
Quarter: 2007Q1

REPORT INFORMATION
  Report Type: 
  Country: None (occurrence: None)
  Receive Date: 20070222
  Receipt Date: 20070222
  Transmission Date: 20070707
  Serious: Yes (Other)
  Sender: FDA-Public Use
  Company Number: None

PATIENT
  Age: 44 Year
  Sex: Female
  Weight: 90.7194 kg

DRUGS (1)
  1. BUPROPION HCL [Suspect]
     Indication: DEPRESSION
     Dosage: 300 MG  1XA.M. PO
     Route: 048
     Dates: start: 20070115, end: 20070221

REACTIONS (7)
  - ANXIETY [None]
  - DRUG INEFFECTIVE [None]
  - MEDICATION RESIDUE [None]
  - MOOD SWINGS [None]
  - NERVOUSNESS [None]
  - PHARMACEUTICAL PRODUCT COMPLAINT [None]
  - TREMOR [None]
